FAERS Safety Report 8988349 (Version 1)
Quarter: 2012Q4

REPORT INFORMATION
  Report Type: Spontaneous
  Country: US (occurrence: None)
  Receive Date: 20121220
  Receipt Date: 20121220
  Transmission Date: 20130627
  Serious: Yes (Disabling)
  Sender: FDA-Public Use
  Company Number: None

PATIENT
  Age: 55 Year
  Sex: Male

DRUGS (9)
  1. ZYTIGA 250MG [Suspect]
     Indication: MALIGNANT NEOPLASM OF PROSTATE
     Route: 048
     Dates: start: 20121015, end: 20121212
  2. OXYCONTIN [Concomitant]
  3. VITAMIN D12 [Concomitant]
  4. MEGESTROL [Concomitant]
  5. XANAX [Concomitant]
  6. LITHIUM CARBONATE [Concomitant]
  7. VITMAIN B12 [Concomitant]
  8. PREDNISONE [Concomitant]
  9. ZOMETA [Concomitant]

REACTIONS (3)
  - Prostatic specific antigen increased [None]
  - Abasia [None]
  - Muscular weakness [None]
